FAERS Safety Report 4422464-X (Version None)
Quarter: 2004Q3

REPORT INFORMATION
  Report Type: 
  Country: None (occurrence: None)
  Receive Date: 20040810
  Receipt Date: 20040730
  Transmission Date: 20050211
  Serious: Yes (Other)
  Sender: FDA-Public Use
  Company Number: JP-JNJFOC-20040700726

PATIENT
  Sex: Female

DRUGS (4)
  1. ITRIZOLE [Suspect]
     Indication: ONYCHOMYCOSIS
     Dosage: PULSE THERAPY 400MG/DAY
     Route: 049
     Dates: start: 20040609, end: 20040615
  2. PRAVASTATIN [Interacting]
     Route: 049
     Dates: start: 20010528, end: 20040603
  3. SULPRIDE [Concomitant]
     Route: 049
  4. URSODESOXYCHOLIC ACID [Concomitant]
     Route: 049

REACTIONS (2)
  - DRUG INTERACTION [None]
  - RHABDOMYOLYSIS [None]
